FAERS Safety Report 9683978 (Version 1)
Quarter: 2013Q4

REPORT INFORMATION
  Report Type: Spontaneous
  Country: FR (occurrence: FR)
  Receive Date: 20131112
  Receipt Date: 20131112
  Transmission Date: 20140711
  Serious: Yes (Hospitalization)
  Sender: FDA-Public Use
  Company Number: PHHY2013FR127502

PATIENT
  Age: 74 Year
  Sex: Male

DRUGS (13)
  1. LEPONEX [Suspect]
     Indication: MAJOR DEPRESSION
     Dosage: 25 MG, QD
     Route: 048
     Dates: start: 20130801, end: 20130822
  2. LEPONEX [Suspect]
     Dosage: 175 MG, QD
     Route: 048
     Dates: start: 20130822, end: 20130827
  3. LEPONEX [Suspect]
     Dosage: 150 MG, QD
     Route: 048
     Dates: start: 20130827, end: 20130920
  4. LEPONEX [Suspect]
     Dosage: UNK
  5. VALDOXAN [Suspect]
     Indication: MAJOR DEPRESSION
     Dosage: 25 MG, QD
     Route: 048
     Dates: start: 20130822, end: 20130917
  6. CYMBALTA [Concomitant]
     Dosage: UNK UKN, UNK
     Dates: start: 20130731, end: 20130822
  7. DOLIPRANE [Concomitant]
     Dosage: UNK UKN, UNK
  8. SPASFON [Concomitant]
     Indication: PAIN
     Dosage: UNK UKN, UNK
  9. MIRTAZAPINE [Concomitant]
     Dosage: UNK UKN, UNK
  10. AVODART [Concomitant]
     Dosage: UNK UKN, UNK
  11. ATARAX                                  /CAN/ [Concomitant]
     Dosage: UNK UKN, UNK
  12. DEPAKOTE [Concomitant]
     Dosage: UNK UKN, UNK
     Dates: end: 20130817
  13. CLOPIXOL                           /00876701/ [Concomitant]
     Dosage: UNK UKN, UNK
     Dates: end: 20130822

REACTIONS (1)
  - Hepatocellular injury [Recovered/Resolved]
